FAERS Safety Report 10569449 (Version 1)
Quarter: 2014Q4

REPORT INFORMATION
  Report Type: Spontaneous
  Country: GB (occurrence: GB)
  Receive Date: 20141106
  Receipt Date: 20141106
  Transmission Date: 20150529
  Serious: Yes (Other)
  Sender: FDA-Public Use
  Company Number: GB-ALLERGAN-1422953US

PATIENT
  Age: 70 Year
  Sex: Male

DRUGS (1)
  1. GANFORT [Suspect]
     Active Substance: BIMATOPROST\TIMOLOL
     Indication: GLAUCOMA
     Dosage: UNK
     Route: 047
     Dates: start: 20140121, end: 20140303

REACTIONS (3)
  - Headache [Recovered/Resolved]
  - Epistaxis [Recovered/Resolved]
  - Discomfort [Recovered/Resolved]

NARRATIVE: CASE EVENT DATE: 20140121
